FAERS Safety Report 9076361 (Version 1)
Quarter: 2013Q1

REPORT INFORMATION
  Report Type: Report from Study
  Country: US (occurrence: US)
  Receive Date: 20130129
  Receipt Date: 20130129
  Transmission Date: 20140127
  Serious: No
  Sender: FDA-Public Use
  Company Number: US-ABBOTT-12P-163-0949240-00

PATIENT
  Age: 62 Year
  Sex: Female

DRUGS (14)
  1. HUMIRA 40 MG/0.8 ML PEN [Suspect]
     Indication: PSORIATIC ARTHROPATHY
     Dates: start: 20120611
  2. NEXIUM [Concomitant]
     Indication: HIATUS HERNIA
     Route: 048
  3. ABILIFY [Concomitant]
     Indication: DEPRESSION
     Dosage: 5MG DAILY
     Route: 048
  4. AMILORIDE [Concomitant]
     Indication: DIURETIC THERAPY
     Dosage: 5MG DAILY
     Route: 048
  5. WELLBUTRIN [Concomitant]
     Indication: DEPRESSION
     Dosage: 450MG DAILY
     Route: 048
  6. PROZAC [Concomitant]
     Indication: DEPRESSION
     Dosage: 60MG DAILY
     Route: 048
  7. TRAZADONE [Concomitant]
     Indication: DEPRESSION
     Route: 048
  8. POTASSIUM [Concomitant]
     Indication: SUPPLEMENTATION THERAPY
  9. ZETIA [Concomitant]
     Indication: BLOOD CHOLESTEROL INCREASED
  10. VITAMIN C [Concomitant]
     Indication: PRODUCT USED FOR UNKNOWN INDICATION
     Dosage: 500MG DAILY
     Route: 048
  11. CALCITRATE [Concomitant]
     Indication: PRODUCT USED FOR UNKNOWN INDICATION
  12. GLUCOSAMINE [Concomitant]
     Indication: PRODUCT USED FOR UNKNOWN INDICATION
  13. CENTRUM [Concomitant]
     Indication: CARDIOVASCULAR EVENT PROPHYLAXIS
  14. EXCEDRIN [Concomitant]
     Indication: PRODUCT USED FOR UNKNOWN INDICATION

REACTIONS (2)
  - Ingrown hair [Recovering/Resolving]
  - Mass [Recovering/Resolving]
